FAERS Safety Report 8343121-3 (Version None)
Quarter: 2012Q2

REPORT INFORMATION
  Report Type: 
  Country: None (occurrence: None)
  Receive Date: 20120508
  Receipt Date: 20120427
  Transmission Date: 20120825
  Serious: Yes (Death, Life-Threatening, Hospitalization)
  Sender: FDA-Public Use
  Company Number: EC-JNJFOC-20120506837

PATIENT
  Age: 72 Year
  Sex: Female
  Weight: 80 kg

DRUGS (9)
  1. ALDACTONE [Concomitant]
  2. GALENIC /GLIBENCLAMIDE/METFORMIN/ [Concomitant]
  3. TELMISARTAN [Concomitant]
  4. ALL OTHER MEDICATIONS [Concomitant]
  5. WARFARIN SODIUM [Suspect]
     Indication: PRODUCT USED FOR UNKNOWN INDICATION
     Dates: end: 20120101
  6. ROSUVASTATIN [Concomitant]
  7. CLONAZEPAM [Concomitant]
  8. XARELTO [Suspect]
     Indication: ATRIAL FIBRILLATION
     Route: 048
     Dates: start: 20120423, end: 20120425
  9. VERAPAMIL [Concomitant]

REACTIONS (2)
  - HAEMORRHAGE [None]
  - RESPIRATORY FAILURE [None]
